FAERS Safety Report 9236821 (Version 2)
Quarter: 2013Q2

REPORT INFORMATION
  Report Type: Spontaneous
  Country: US (occurrence: US)
  Receive Date: 20130417
  Receipt Date: 20130612
  Transmission Date: 20140414
  Serious: No
  Sender: FDA-Public Use
  Company Number: US-009507513-1304USA005498

PATIENT
  Age: 24 Year
  Sex: Female
  Weight: 98.41 kg

DRUGS (5)
  1. NEXPLANON [Suspect]
     Indication: CONTRACEPTION
     Dosage: 1 DF, UNK
     Route: 059
     Dates: start: 20130311, end: 20130408
  2. ADDERALL TABLETS [Concomitant]
  3. PRILOSEC [Concomitant]
  4. SEROQUEL [Concomitant]
  5. CODEINE PHOSPHATE (+) PROMETHAZINE HYDROCHLORIDE [Concomitant]

REACTIONS (2)
  - Implant site cellulitis [Unknown]
  - Device expulsion [Recovered/Resolved]
